FAERS Safety Report 8559812-5 (Version None)
Quarter: 2012Q3

REPORT INFORMATION
  Report Type: 
  Country: None (occurrence: None)
  Receive Date: 20120802
  Receipt Date: 20120727
  Transmission Date: 20120928
  Serious: Yes (Other)
  Sender: FDA-Public Use
  Company Number: US-PFIZER INC-2012182947

PATIENT
  Sex: Female
  Weight: 77.098 kg

DRUGS (3)
  1. TOVIAZ [Suspect]
     Indication: INCONTINENCE
     Dosage: 4 MG, 1X/DAY
     Dates: start: 20120619, end: 20120630
  2. SYNTHROID [Concomitant]
     Indication: HYPOTHYROIDISM
     Dosage: 137 UG, DAILY
  3. IBUPROFEN (ADVIL) [Concomitant]
     Indication: ARTHRITIS
     Dosage: 2 TABLETS DAILY IN THE MORNING

REACTIONS (11)
  - VISION BLURRED [None]
  - MENTAL IMPAIRMENT [None]
  - DYSARTHRIA [None]
  - DYSPNOEA [None]
  - MUSCLE DISORDER [None]
  - DYSPEPSIA [None]
  - PAIN [None]
  - URINARY TRACT INFECTION [None]
  - CONSTIPATION [None]
  - DIZZINESS [None]
  - DRY MOUTH [None]
